FAERS Safety Report 16281743 (Version 1)
Quarter: 2019Q2

REPORT INFORMATION
  Report Type: Spontaneous
  Country: GB (occurrence: GB)
  Receive Date: 20190507
  Receipt Date: 20190507
  Transmission Date: 20190711
  Serious: Yes (Other)
  Sender: FDA-Public Use
  Company Number: IND-GB-009507513-1905GBR001717

PATIENT
  Age: 38 Year
  Sex: Male

DRUGS (1)
  1. ARCOXIA [Suspect]
     Active Substance: ETORICOXIB
     Dosage: UNK
     Route: 048
     Dates: start: 200905

REACTIONS (1)
  - Barrett^s oesophagus [Unknown]

NARRATIVE: CASE EVENT DATE: 201810
